FAERS Safety Report 7569769-1 (Version None)
Quarter: 2011Q2

REPORT INFORMATION
  Report Type: 
  Country: None (occurrence: None)
  Receive Date: 20110621
  Receipt Date: 20110621
  Transmission Date: 20111010
  Serious: No
  Sender: FDA-Public Use
  Company Number: None

PATIENT
  Sex: Male
  Weight: 92.0802 kg

DRUGS (1)
  1. CLINDAMYCIN PALMITATE HYDROCHLORIDE [Suspect]
     Indication: ABSCESS
     Dosage: 75MG 4 TBS ORAL
     Route: 048
     Dates: start: 20110503

REACTIONS (1)
  - FLATULENCE [None]
